FAERS Safety Report 24174187 (Version 1)
Quarter: 2024Q3

REPORT INFORMATION
  Report Type: Spontaneous
  Country: IN (occurrence: IN)
  Receive Date: 20240805
  Receipt Date: 20240805
  Transmission Date: 20241017
  Serious: Yes (Other)
  Sender: PFIZER
  Company Number: IN-PFIZER INC-PV202400100260

PATIENT
  Age: 45 Year
  Sex: Female

DRUGS (2)
  1. METHOTREXATE SODIUM [Suspect]
     Active Substance: METHOTREXATE SODIUM
     Dosage: 10 MG, WEEKLY
  2. HYDROXYCHLOROQUINE [Suspect]
     Active Substance: HYDROXYCHLOROQUINE
     Dosage: 200 MG, DAILY

REACTIONS (10)
  - Ulcer [Not Recovered/Not Resolved]
  - Skin disorder [Unknown]
  - Skin graft [Not Recovered/Not Resolved]
  - Skin graft failure [Unknown]
  - Rheumatoid vasculitis [Unknown]
  - Pruritus [Unknown]
  - Wound [Not Recovered/Not Resolved]
  - Impaired healing [Unknown]
  - Condition aggravated [Unknown]
  - Pain [Recovering/Resolving]
